FAERS Safety Report 9814489 (Version 1)
Quarter: 2014Q1

REPORT INFORMATION
  Report Type: Spontaneous
  Country: US (occurrence: US)
  Receive Date: 20140113
  Receipt Date: 20140113
  Transmission Date: 20141002
  Serious: No
  Sender: FDA-Public Use
  Company Number: US-BIOGENIDEC-2013BI056240

PATIENT
  Age: 59 Year
  Sex: Female

DRUGS (6)
  1. CLONAZEPAM [Concomitant]
  2. TECFIDERA [Suspect]
     Indication: MULTIPLE SCLEROSIS
     Route: 048
     Dates: start: 20130508
  3. TECFIDERA [Suspect]
     Indication: MULTIPLE SCLEROSIS
     Route: 048
     Dates: start: 20130515, end: 201305
  4. TECFIDERA [Suspect]
     Indication: MULTIPLE SCLEROSIS
     Route: 048
     Dates: start: 20130525, end: 20130531
  5. TOPAMAX [Concomitant]
  6. CALCIUM [Concomitant]

REACTIONS (10)
  - Neuralgia [Not Recovered/Not Resolved]
  - Urticaria [Unknown]
  - Fungal infection [Unknown]
  - Speech disorder [Not Recovered/Not Resolved]
  - Cognitive disorder [Not Recovered/Not Resolved]
  - Decreased immune responsiveness [Recovered/Resolved]
  - Upper respiratory tract infection [Recovered/Resolved]
  - Flushing [Not Recovered/Not Resolved]
  - Pruritus [Not Recovered/Not Resolved]
  - Multiple sclerosis relapse [Recovered/Resolved]
